FAERS Safety Report 25961374 (Version 1)
Quarter: 2025Q4

REPORT INFORMATION
  Report Type: Report from Study
  Country: CA (occurrence: CA)
  Receive Date: 20251027
  Receipt Date: 20251027
  Transmission Date: 20260118
  Serious: Yes (Hospitalization)
  Sender: ALEXION PHARMACEUTICALS
  Company Number: CA-AstraZeneca-CH-00975464A

PATIENT
  Sex: Female
  Weight: 58.06 kg

DRUGS (3)
  1. CAPIVASERTIB [Suspect]
     Active Substance: CAPIVASERTIB
     Indication: Hormone receptor positive HER2 negative breast cancer
     Dosage: 320 MILLIGRAM, BID
     Dates: start: 20250425
  2. FASLODEX [Suspect]
     Active Substance: FULVESTRANT
     Indication: Hormone receptor positive HER2 negative breast cancer
     Dosage: 500 MILLIGRAM, Q4W
     Dates: start: 20250425
  3. FASLODEX [Suspect]
     Active Substance: FULVESTRANT

REACTIONS (1)
  - Fall [Unknown]
